FAERS Safety Report 24901180 (Version 2)
Quarter: 2025Q1

REPORT INFORMATION
  Report Type: Spontaneous
  Country: GB (occurrence: GB)
  Receive Date: 20250129
  Receipt Date: 20250314
  Transmission Date: 20250408
  Serious: No
  Sender: PFIZER
  Company Number: GB-PFIZER INC-202500016101

PATIENT
  Age: 48 Year
  Sex: Female

DRUGS (1)
  1. GENOTROPIN [Suspect]
     Active Substance: SOMATROPIN
     Route: 058

REACTIONS (1)
  - Device leakage [Unknown]
